FAERS Safety Report 15546014 (Version 1)
Quarter: 2018Q4

REPORT INFORMATION
  Report Type: Spontaneous
  Country: US (occurrence: US)
  Receive Date: 20181017
  Receipt Date: 20181017
  Transmission Date: 20190205
  Serious: No
  Sender: FDA-Public Use
  Company Number: None

PATIENT
  Age: 45 Year
  Sex: Female

DRUGS (2)
  1. H.P. ACTHAR [Suspect]
     Active Substance: CORTICOTROPIN
     Dosage: ?          OTHER STRENGTH:80U;?
     Route: 058
     Dates: start: 201703
  2. OCREVUS [Concomitant]
     Active Substance: OCRELIZUMAB

REACTIONS (2)
  - Fatigue [None]
  - Somnolence [None]

NARRATIVE: CASE EVENT DATE: 20181016
